FAERS Safety Report 18599081 (Version 1)
Quarter: 2020Q4

REPORT INFORMATION
  Report Type: Spontaneous
  Country: FR (occurrence: FR)
  Receive Date: 20201210
  Receipt Date: 20201210
  Transmission Date: 20210114
  Serious: Yes (Hospitalization)
  Sender: FDA-Public Use
  Company Number: FR-TEVA-2020-FR-1856182

PATIENT
  Age: 70 Year
  Sex: Female
  Weight: 80 kg

DRUGS (7)
  1. CEFUROXIME. [Suspect]
     Active Substance: CEFUROXIME
     Indication: EYE PAIN
     Route: 048
     Dates: start: 202010, end: 20201024
  2. PARACETAMOL [Concomitant]
     Active Substance: ACETAMINOPHEN
  3. MOVICOL [Concomitant]
     Active Substance: POLYETHYLENE GLYCOL 3350\POTASSIUM CHLORIDE\SODIUM BICARBONATE\SODIUM CHLORIDE
  4. CHOLECALCIFEROL [Concomitant]
     Active Substance: CHOLECALCIFEROL
  5. AMOXICILLINE [Suspect]
     Active Substance: AMOXICILLIN
     Indication: EYE PAIN
     Dosage: UNIT DOSE : 3 GRAM
     Route: 048
     Dates: start: 20201024, end: 20201101
  6. METRONIDAZOLE. [Suspect]
     Active Substance: METRONIDAZOLE
     Indication: EYE PAIN
     Dosage: UNIT DOSE : 1500 MG
     Route: 048
     Dates: start: 20201024, end: 20201101
  7. LAMALINE [Concomitant]

REACTIONS (4)
  - Urticaria [Recovered/Resolved]
  - Agranulocytosis [Recovered/Resolved]
  - Migraine [Recovered/Resolved]
  - Thrombocytopenia [Recovered/Resolved]

NARRATIVE: CASE EVENT DATE: 20201027
